FAERS Safety Report 6264858-6 (Version None)
Quarter: 2009Q3

REPORT INFORMATION
  Report Type: 
  Country: None (occurrence: None)
  Receive Date: 20090710
  Receipt Date: 20090706
  Transmission Date: 20100115
  Serious: Yes (Death)
  Sender: FDA-Public Use
  Company Number: DE-B.I. PHARMACEUTICALS,INC./RIDGEFIELD-2009-DE-04695DE

PATIENT
  Age: 46 Year
  Sex: Male
  Weight: 64 kg

DRUGS (3)
  1. VIRAMUNE [Suspect]
     Indication: HIV INFECTION
     Dosage: 400 MG
     Route: 048
  2. SUBOXONE [Suspect]
     Indication: DRUG DEPENDENCE
     Dosage: 8/2MG
     Route: 048
     Dates: start: 20080318
  3. TRUVADA [Suspect]
     Indication: HIV INFECTION
     Dosage: 245/200  G
     Route: 048

REACTIONS (1)
  - DEATH [None]
